FAERS Safety Report 4493204-3 (Version None)
Quarter: 2004Q4

REPORT INFORMATION
  Report Type: 
  Country: None (occurrence: None)
  Receive Date: 20041104
  Receipt Date: 20041006
  Transmission Date: 20050328
  Serious: Yes (Other)
  Sender: FDA-Public Use
  Company Number: PHEH2004US10770

PATIENT
  Age: 60 Year
  Sex: Female

DRUGS (11)
  1. ZOMETA [Suspect]
     Indication: METASTASES TO BONE
     Dosage: 4 MG EVERY 4 WEEKS
     Route: 042
     Dates: start: 20020701, end: 20041007
  2. TAMOXIFEN [Concomitant]
     Indication: BREAST CANCER
     Dosage: 20 MG, QD
     Route: 048
     Dates: start: 19920101, end: 19960901
  3. MEGACE [Concomitant]
     Indication: BREAST CANCER
     Dates: start: 19960501, end: 19990701
  4. FEMARA [Concomitant]
     Indication: BREAST CANCER
     Dosage: 2.5 MG, QD
     Route: 048
     Dates: start: 20020812
  5. FARESTON [Concomitant]
     Indication: BREAST CANCER
     Dates: start: 19990601, end: 20020801
  6. CAF [Concomitant]
     Indication: BREAST CANCER
     Dosage: UNK, UNK
     Dates: start: 19920101, end: 19930203
  7. FLUOROURACIL [Concomitant]
     Indication: BREAST CANCER
     Dates: start: 19920101, end: 19930101
  8. CYTOXAN [Concomitant]
     Indication: BREAST CANCER
     Dates: start: 19920101, end: 19930101
  9. ARIMIDEX [Concomitant]
  10. FEMARA [Concomitant]
  11. TAMOXIFEN [Concomitant]

REACTIONS (4)
  - OSTEOMYELITIS [None]
  - OSTEONECROSIS [None]
  - THERMAL BURN [None]
  - TOOTH EXTRACTION [None]
